FAERS Safety Report 12513238 (Version 1)
Quarter: 2016Q2

REPORT INFORMATION
  Report Type: Spontaneous
  Country: US (occurrence: None)
  Receive Date: 20160629
  Receipt Date: 20160629
  Transmission Date: 20160815
  Serious: Yes (Hospitalization)
  Sender: FDA-Public Use
  Company Number: None

PATIENT
  Age: 26 Year
  Sex: Female
  Weight: 67.13 kg

DRUGS (10)
  1. MILK THISTLE [Concomitant]
     Active Substance: MILK THISTLE
  2. ESTRADIOL/TESTOSTERONE HORMONE CREAM [Concomitant]
  3. ISOMER E (VITAMIN E) [Concomitant]
  4. VITAMIN B12 [Concomitant]
     Active Substance: CYANOCOBALAMIN
  5. CLINDAMYCIN HCL 300 MG, 300 MG TARGET PHARMACY [Suspect]
     Active Substance: CLINDAMYCIN HYDROCHLORIDE
     Indication: PROPHYLAXIS
     Route: 048
     Dates: start: 20160604, end: 20160611
  6. VITAMIN D [Concomitant]
     Active Substance: CHOLECALCIFEROL
  7. COENZYME Q10 [Concomitant]
     Active Substance: UBIDECARENONE
  8. VITAMIN C [Concomitant]
     Active Substance: ASCORBIC ACID
  9. CLINDAMYCIN HCL 300 MG, 300 MG TARGET PHARMACY [Suspect]
     Active Substance: CLINDAMYCIN HYDROCHLORIDE
     Indication: POST PROCEDURAL INFECTION
     Route: 048
     Dates: start: 20160604, end: 20160611
  10. SILYMARIN [Concomitant]
     Active Substance: MILK THISTLE

REACTIONS (1)
  - Clostridium difficile infection [None]

NARRATIVE: CASE EVENT DATE: 20160620
